FAERS Safety Report 9529576 (Version 1)
Quarter: 2013Q2

REPORT INFORMATION
  Report Type: Spontaneous
  Country: US (occurrence: None)
  Receive Date: 20130402
  Receipt Date: 20130402
  Transmission Date: 20140414
  Serious: Yes (Other)
  Sender: FDA-Public Use
  Company Number: RB-49787-2013

PATIENT
  Age: 56 Year
  Sex: Male

DRUGS (1)
  1. SUBOXONE 8 MG [Suspect]
     Indication: DRUG DEPENDENCE
     Route: 060
     Dates: start: 2012

REACTIONS (2)
  - Back injury [None]
  - Back pain [None]
